FAERS Safety Report 14839237 (Version 1)
Quarter: 2018Q2

REPORT INFORMATION
  Report Type: Report from Study
  Country: US (occurrence: US)
  Receive Date: 20180502
  Receipt Date: 20180502
  Transmission Date: 20180711
  Serious: Yes (Other)
  Sender: FDA-Public Use
  Company Number: US-GILEAD-2018-0335762

PATIENT
  Age: 63 Year
  Sex: Female

DRUGS (1)
  1. IDELALISIB [Suspect]
     Active Substance: IDELALISIB
     Indication: CHRONIC LYMPHOCYTIC LEUKAEMIA
     Dosage: 150 MG, ONE TAB FOR TWO DAYS, THEN ONE DAY OFF
     Route: 048

REACTIONS (3)
  - Off label use [Not Recovered/Not Resolved]
  - Malaise [Unknown]
  - Clostridium difficile infection [Unknown]
